FAERS Safety Report 17572767 (Version 2)
Quarter: 2020Q4

REPORT INFORMATION
  Report Type: Spontaneous
  Country: US (occurrence: US)
  Receive Date: 20200323
  Receipt Date: 20201008
  Transmission Date: 20210113
  Serious: No
  Sender: FDA-Public Use
  Company Number: US-LEXICON PHARMACEUTICALS, INC-20-1606-00212

PATIENT
  Age: 76 Year
  Sex: Male

DRUGS (3)
  1. XERMELO [Suspect]
     Active Substance: TELOTRISTAT ETHYL
     Indication: CARCINOID TUMOUR OF THE SMALL BOWEL
     Dates: start: 20190821
  2. POTASSIUM [Concomitant]
     Active Substance: POTASSIUM
     Dosage: TAKES ON AND OFF
  3. SOMATULINE [Concomitant]
     Active Substance: LANREOTIDE ACETATE

REACTIONS (1)
  - Flatulence [Unknown]
